FAERS Safety Report 25172638 (Version 1)
Quarter: 2025Q2

REPORT INFORMATION
  Report Type: Spontaneous
  Country: DE (occurrence: DE)
  Receive Date: 20250408
  Receipt Date: 20250408
  Transmission Date: 20250716
  Serious: Yes (Life-Threatening, Hospitalization, Other)
  Sender: SANDOZ
  Company Number: DE-SA-2019SA315221

PATIENT
  Age: 34 Year
  Sex: Male

DRUGS (43)
  1. ADRIACIN [Suspect]
     Active Substance: DOXORUBICIN HYDROCHLORIDE
     Indication: Burkitt^s lymphoma
     Route: 042
  2. ADRIACIN [Suspect]
     Active Substance: DOXORUBICIN HYDROCHLORIDE
     Route: 065
  3. CYTARABINE [Suspect]
     Active Substance: CYTARABINE
     Indication: Burkitt^s lymphoma
     Route: 042
  4. CYTARABINE [Suspect]
     Active Substance: CYTARABINE
     Route: 065
  5. DEXAMETHASONE [Suspect]
     Active Substance: DEXAMETHASONE
     Indication: Burkitt^s lymphoma
     Route: 065
  6. CYCLOPHOSPHAMIDE [Suspect]
     Active Substance: CYCLOPHOSPHAMIDE
     Indication: Burkitt^s lymphoma
     Route: 042
  7. CYCLOPHOSPHAMIDE [Suspect]
     Active Substance: CYCLOPHOSPHAMIDE
     Route: 042
  8. CYCLOPHOSPHAMIDE [Suspect]
     Active Substance: CYCLOPHOSPHAMIDE
     Route: 065
  9. CYCLOPHOSPHAMIDE [Suspect]
     Active Substance: CYCLOPHOSPHAMIDE
     Route: 065
  10. METHOTREXATE [Suspect]
     Active Substance: METHOTREXATE
     Indication: Burkitt^s lymphoma
     Route: 037
  11. METHOTREXATE [Suspect]
     Active Substance: METHOTREXATE
     Route: 037
  12. METHOTREXATE [Suspect]
     Active Substance: METHOTREXATE
     Route: 042
  13. METHOTREXATE [Suspect]
     Active Substance: METHOTREXATE
     Route: 042
  14. METHOTREXATE [Suspect]
     Active Substance: METHOTREXATE
     Route: 042
  15. METHOTREXATE [Suspect]
     Active Substance: METHOTREXATE
     Route: 042
  16. METHOTREXATE [Suspect]
     Active Substance: METHOTREXATE
     Route: 065
  17. PREDNISONE [Suspect]
     Active Substance: PREDNISONE
     Indication: Burkitt^s lymphoma
     Route: 048
  18. PROMETHAZINE [Suspect]
     Active Substance: PROMETHAZINE HYDROCHLORIDE
     Dosage: 150 MG, QD
     Route: 065
  19. PROMETHAZINE [Suspect]
     Active Substance: PROMETHAZINE HYDROCHLORIDE
     Dosage: 400 MG, QD
     Route: 065
  20. PROMETHAZINE [Suspect]
     Active Substance: PROMETHAZINE HYDROCHLORIDE
     Dosage: 8.725 G
     Route: 065
  21. PROMETHAZINE [Suspect]
     Active Substance: PROMETHAZINE HYDROCHLORIDE
     Route: 065
     Dates: start: 19731027
  22. PROMETHAZINE [Suspect]
     Active Substance: PROMETHAZINE HYDROCHLORIDE
     Route: 065
     Dates: start: 19730918
  23. PROMETHAZINE [Suspect]
     Active Substance: PROMETHAZINE HYDROCHLORIDE
     Route: 065
     Dates: start: 19731011
  24. PROMETHAZINE [Suspect]
     Active Substance: PROMETHAZINE HYDROCHLORIDE
     Indication: Obsessive-compulsive disorder
     Route: 065
     Dates: start: 19731027
  25. PROMETHAZINE [Suspect]
     Active Substance: PROMETHAZINE HYDROCHLORIDE
     Route: 065
     Dates: start: 19730926
  26. PROMETHAZINE [Suspect]
     Active Substance: PROMETHAZINE HYDROCHLORIDE
     Route: 065
     Dates: start: 19731114
  27. TENIPOSIDE [Suspect]
     Active Substance: TENIPOSIDE
     Indication: Burkitt^s lymphoma
     Route: 042
  28. PERPHENAZINE [Concomitant]
     Active Substance: PERPHENAZINE
     Indication: Obsessive-compulsive disorder
     Route: 065
  29. HALOPERIDOL [Concomitant]
     Active Substance: HALOPERIDOL
     Indication: Obsessive-compulsive disorder
     Route: 065
  30. LEUCOVORIN [Concomitant]
     Active Substance: LEUCOVORIN\LEUCOVORIN CALCIUM
     Indication: Prophylaxis
     Route: 065
  31. AMITRIPTYLINE HYDROCHLORIDE\CHLORDIAZEPOXIDE HYDROCHLORIDE [Concomitant]
     Active Substance: AMITRIPTYLINE HYDROCHLORIDE\CHLORDIAZEPOXIDE HYDROCHLORIDE
     Indication: Obsessive-compulsive disorder
     Route: 065
  32. PHENOBARBITAL [Concomitant]
     Active Substance: PHENOBARBITAL
     Indication: Sleep disorder
     Route: 065
  33. MELLARIL [Concomitant]
     Active Substance: THIORIDAZINE HYDROCHLORIDE
     Indication: Obsessive-compulsive disorder
     Route: 065
  34. Mogadan [Concomitant]
     Indication: Sleep disorder
     Route: 065
  35. Persedon [Concomitant]
     Indication: Sleep disorder
     Route: 065
  36. TRIFLUPROMAZINE HYDROCHLORIDE [Concomitant]
     Active Substance: TRIFLUPROMAZINE HYDROCHLORIDE
     Indication: Obsessive-compulsive disorder
     Route: 065
  37. Somnifen [Concomitant]
     Indication: Sleep disorder
     Route: 065
  38. Tavor [Concomitant]
     Indication: Obsessive-compulsive disorder
     Route: 065
  39. CHLORPROTHIXENE [Concomitant]
     Active Substance: CHLORPROTHIXENE
     Indication: Obsessive-compulsive disorder
     Route: 065
     Dates: start: 19731027
  40. CHLORPROTHIXENE [Concomitant]
     Active Substance: CHLORPROTHIXENE
     Route: 065
     Dates: start: 19730918
  41. CHLORPROTHIXENE [Concomitant]
     Active Substance: CHLORPROTHIXENE
     Route: 065
     Dates: start: 19731011
  42. CHLORPROTHIXENE [Concomitant]
     Active Substance: CHLORPROTHIXENE
     Route: 065
     Dates: start: 19730926
  43. VALIUM [Concomitant]
     Active Substance: DIAZEPAM
     Indication: Obsessive-compulsive disorder
     Route: 065

REACTIONS (16)
  - Leukaemoid reaction [Recovered/Resolved]
  - Sepsis [Recovered/Resolved]
  - Staphylococcal infection [Recovered/Resolved]
  - Leukopenia [Recovered/Resolved]
  - Mouth ulceration [Recovered/Resolved]
  - Laryngitis [Recovered/Resolved]
  - Oropharyngeal pain [Recovered/Resolved]
  - Pyrexia [Recovered/Resolved]
  - Agranulocytosis [Recovered/Resolved]
  - Dysphagia [Recovered/Resolved]
  - Klebsiella infection [Recovered/Resolved]
  - Off label use [Unknown]
  - Tonsillitis [Recovered/Resolved]
  - Pharyngitis [Recovered/Resolved]
  - Alopecia [Unknown]
  - Anaemia [Unknown]

NARRATIVE: CASE EVENT DATE: 19731122
